FAERS Safety Report 15901192 (Version 1)
Quarter: 2019Q1

REPORT INFORMATION
  Report Type: Spontaneous
  Country: US (occurrence: US)
  Receive Date: 20190201
  Receipt Date: 20190201
  Transmission Date: 20190417
  Serious: Yes (Other)
  Sender: FDA-Public Use
  Company Number: None

PATIENT
  Age: 81 Month
  Sex: Female
  Weight: 66.6 kg

DRUGS (3)
  1. LETROZOLE. [Suspect]
     Active Substance: LETROZOLE
     Indication: OVARIAN NEOPLASM
     Route: 048
     Dates: start: 20180727, end: 20190128
  2. KISQALI [Suspect]
     Active Substance: RIBOCICLIB
     Indication: OVARIAN NEOPLASM
     Dosage: ?          OTHER FREQUENCY:DAILY -21 DAYS;?
     Route: 048
     Dates: start: 20180727, end: 20181231
  3. ZEJULA [Concomitant]
     Active Substance: NIRAPARIB

REACTIONS (1)
  - Disease progression [None]

NARRATIVE: CASE EVENT DATE: 20190201
